FAERS Safety Report 10257884 (Version 1)
Quarter: 2014Q2

REPORT INFORMATION
  Report Type: Report from Study
  Country: FR (occurrence: FR)
  Receive Date: 20140625
  Receipt Date: 20140625
  Transmission Date: 20141212
  Serious: Yes (Hospitalization)
  Sender: FDA-Public Use
  Company Number: FR-BRISTOL-MYERS SQUIBB COMPANY-21100987

PATIENT
  Age: 72 Year
  Sex: Female

DRUGS (4)
  1. CETUXIMAB [Suspect]
     Indication: SQUAMOUS CELL CARCINOMA OF HEAD AND NECK
     Dosage: RECENT INFUSION:19MAY14
     Route: 042
     Dates: start: 2014
  2. CARBOPLATIN INJECTION [Suspect]
     Indication: SQUAMOUS CELL CARCINOMA OF HEAD AND NECK
     Route: 042
     Dates: start: 20140311, end: 20140512
  3. 5-FU [Suspect]
     Indication: SQUAMOUS CELL CARCINOMA OF HEAD AND NECK
     Route: 042
     Dates: start: 20140311, end: 20140515
  4. LERCANIDIPINE [Concomitant]
     Indication: HYPERTENSION
     Dates: start: 20121212

REACTIONS (2)
  - Pancytopenia [Recovered/Resolved]
  - Confusional state [Recovered/Resolved]
